FAERS Safety Report 6231624-7 (Version None)
Quarter: 2009Q2

REPORT INFORMATION
  Report Type: 
  Country: None (occurrence: None)
  Receive Date: 20090616
  Receipt Date: 20090604
  Transmission Date: 20091009
  Serious: Yes (Other)
  Sender: FDA-Public Use
  Company Number: PL-BAYER-200922437GPV

PATIENT

DRUGS (2)
  1. ASPIRIN [Suspect]
     Indication: STENT PLACEMENT
  2. CLOPIDOGREL [Suspect]
     Indication: STENT PLACEMENT

REACTIONS (2)
  - ACUTE MYOCARDIAL INFARCTION [None]
  - THROMBOSIS IN DEVICE [None]
